FAERS Safety Report 8788499 (Version 1)
Quarter: 2012Q4

REPORT INFORMATION
  Report Type: 
  Country: US (occurrence: US)
  Receive Date: 20120914
  Receipt Date: 20120914
  Transmission Date: 20130627
  Serious: No
  Sender: FDA-Public Use
  Company Number: US-VERTEX PHARMACEUTICAL INC.-AE-2012-009892

PATIENT
  Sex: Female
  Weight: 91 kg

DRUGS (6)
  1. VX-950 [Suspect]
     Indication: HEPATITIS C
     Dosage: 750 mg, tid
     Route: 048
     Dates: start: 20120612
  2. RIBASPHERE [Concomitant]
     Indication: HEPATITIS C
     Dosage: 600 mg, bid
     Route: 048
     Dates: start: 20120612
  3. PEGASYS [Concomitant]
     Indication: HEPATITIS C
     Dosage: 180 ?g, UNK
     Route: 058
     Dates: start: 20120612
  4. METOPROLOL TARTRATE [Concomitant]
     Dosage: 50 mg, qd
     Route: 048
  5. GLIPIZIDE ER [Concomitant]
     Dosage: 2.5 mg, bid
     Route: 048
  6. NISOLDIPINE [Concomitant]
     Dosage: 17 mg, qd
     Route: 048

REACTIONS (5)
  - Tremor [Recovered/Resolved]
  - Depression [Unknown]
  - Fatigue [Unknown]
  - Rash pruritic [Unknown]
  - Diarrhoea [Unknown]
